FAERS Safety Report 23735705 (Version 1)
Quarter: 2024Q2

REPORT INFORMATION
  Report Type: Spontaneous
  Country: US (occurrence: None)
  Receive Date: 20240411
  Receipt Date: 20240411
  Transmission Date: 20240716
  Serious: No
  Sender: FDA-Public Use
  Company Number: None

PATIENT
  Age: 45 Year
  Sex: Male

DRUGS (2)
  1. SUBLOCADE [Suspect]
     Active Substance: BUPRENORPHINE
     Route: 003
  2. SUBLOCADE [Concomitant]
     Active Substance: BUPRENORPHINE
     Dates: start: 20240325, end: 20240328

REACTIONS (1)
  - Injection site abscess [None]

NARRATIVE: CASE EVENT DATE: 20240328
